FAERS Safety Report 5698580-1 (Version None)
Quarter: 2008Q2

REPORT INFORMATION
  Report Type: 
  Country: None (occurrence: None)
  Receive Date: 20080408
  Receipt Date: 20060926
  Transmission Date: 20081010
  Serious: No
  Sender: FDA-Public Use
  Company Number: US-BAYER-US-2006-028757

PATIENT
  Age: 70 Year
  Sex: Female
  Weight: 58 kg

DRUGS (3)
  1. CLIMARA [Suspect]
     Indication: HORMONE REPLACEMENT THERAPY
     Route: 062
  2. LIPITOR [Concomitant]
     Dosage: UNIT DOSE: 10 MG
     Route: 048
  3. TOPRAL [Concomitant]
     Dosage: UNIT DOSE: 25 MG
     Route: 048

REACTIONS (2)
  - AMNESIA [None]
  - HOT FLUSH [None]
